FAERS Safety Report 4316950-0 (Version None)
Quarter: 2004Q1

REPORT INFORMATION
  Report Type: 
  Country: None (occurrence: None)
  Receive Date: 20040312
  Receipt Date: 20040305
  Transmission Date: 20041129
  Serious: Yes (Hospitalization)
  Sender: FDA-Public Use
  Company Number: USA-2002-009427

PATIENT
  Age: 36 Year
  Sex: Female

DRUGS (2)
  1. BETASERON [Suspect]
     Indication: MULTIPLE SCLEROSIS
     Dosage: 8 MIU, EVERY 2D, SUBCUTANEOUS
     Route: 058
     Dates: start: 19990101
  2. TYLENOL (CAPLET) [Concomitant]

REACTIONS (8)
  - CHILLS [None]
  - CONDITION AGGRAVATED [None]
  - DECREASED APPETITE [None]
  - INTERVERTEBRAL DISC PROTRUSION [None]
  - MULTIPLE SCLEROSIS [None]
  - NAUSEA [None]
  - NERVE COMPRESSION [None]
  - PYREXIA [None]
